FAERS Safety Report 4910009-7 (Version None)
Quarter: 2006Q1

REPORT INFORMATION
  Report Type: 
  Country: None (occurrence: None)
  Receive Date: 20060208
  Receipt Date: 20060130
  Transmission Date: 20060701
  Serious: Yes (Death, Other)
  Sender: FDA-Public Use
  Company Number: 2006EU000220

PATIENT
  Age: 41 Year
  Sex: Female

DRUGS (3)
  1. PROGRAF [Suspect]
     Indication: RENAL TRANSPLANT
  2. MYCOPHENOLATE/MOFETIL (MYCOPHENOLATE MOFETIL) [Suspect]
     Indication: RENAL TRANSPLANT
  3. CORTICOSTEROIDS [Suspect]
     Indication: RENAL TRANSPLANT

REACTIONS (10)
  - CYTOMEGALOVIRUS INFECTION [None]
  - KIDNEY TRANSPLANT REJECTION [None]
  - MALIGNANT MELANOMA [None]
  - METASTASES TO BONE [None]
  - METASTASES TO LIVER [None]
  - METASTASES TO LYMPH NODES [None]
  - NEPHROPATHY TOXIC [None]
  - NEUTROPENIA [None]
  - POLYOMAVIRUS-ASSOCIATED NEPHROPATHY [None]
  - TRANSAMINASES INCREASED [None]
